FAERS Safety Report 7814848-4 (Version None)
Quarter: 2011Q4

REPORT INFORMATION
  Report Type: 
  Country: None (occurrence: None)
  Receive Date: 20111013
  Receipt Date: 20111013
  Transmission Date: 20120403
  Serious: No
  Sender: FDA-Public Use
  Company Number: None

PATIENT
  Age: 23 Year
  Sex: Female
  Weight: 72.5755 kg

DRUGS (1)
  1. LEVAQUIN [Suspect]
     Indication: SINUSITIS
     Dosage: SHE ONLY TOOK 1 PILL AND REACTION BEGUN 5-10 MINUTES LATER
     Dates: start: 20110831

REACTIONS (3)
  - LIP SWELLING [None]
  - FLUSHING [None]
  - URTICARIA [None]
